FAERS Safety Report 8244750-8 (Version None)
Quarter: 2012Q1

REPORT INFORMATION
  Report Type: 
  Country: None (occurrence: None)
  Receive Date: 20120329
  Receipt Date: 20110315
  Transmission Date: 20120608
  Serious: No
  Sender: FDA-Public Use
  Company Number: US-MYLANLABS-2011S1005687

PATIENT
  Age: 40 Year
  Sex: Male
  Weight: 95.26 kg

DRUGS (2)
  1. FENTANYL-100 [Suspect]
     Indication: PAIN
     Dosage: CHANGED Q48H.
     Route: 062
     Dates: start: 20110201
  2. FENTANYL-100 [Suspect]
     Dosage: CHANGED Q48H.
     Route: 062
     Dates: start: 20110201

REACTIONS (2)
  - INTENTIONAL DRUG MISUSE [None]
  - DRUG WITHDRAWAL SYNDROME [None]
